FAERS Safety Report 5038460-8 (Version None)
Quarter: 2006Q2

REPORT INFORMATION
  Report Type: 
  Country: None (occurrence: None)
  Receive Date: 20060601
  Receipt Date: 20060313
  Transmission Date: 20061013
  Serious: No
  Sender: FDA-Public Use
  Company Number: 2006PV010188

PATIENT
  Age: 50 Year
  Sex: Female

DRUGS (18)
  1. BYETTA [Suspect]
     Indication: DIABETES MELLITUS NON-INSULIN-DEPENDENT
     Dosage: 5 MCG;BID;SC
     Route: 058
     Dates: start: 20060215
  2. METFORMIN [Concomitant]
  3. SERZONE [Concomitant]
  4. LOTENSIN [Concomitant]
  5. AVAPRO [Concomitant]
  6. PLAVIX [Concomitant]
  7. LYRICA [Concomitant]
  8. ASA BABY [Concomitant]
  9. FISH OIL [Concomitant]
  10. CALCIUM D [Concomitant]
  11. NIACIN [Concomitant]
  12. VITAMIN B-12 [Concomitant]
  13. VITAMIN B6 [Concomitant]
  14. MAGNESIUM WITH ZINC [Concomitant]
  15. CHROMIUM PICOLINATE [Concomitant]
  16. CINNAMON [Concomitant]
  17. GYMNEMA MULBERRY COMPLEX [Concomitant]
  18. GYMNEMA SYLVESTRE [Concomitant]

REACTIONS (10)
  - ABDOMINAL DISTENSION [None]
  - ABDOMINAL PAIN UPPER [None]
  - ASTHENIA [None]
  - DIARRHOEA [None]
  - DIZZINESS [None]
  - GASTROOESOPHAGEAL REFLUX DISEASE [None]
  - MUSCLE STRAIN [None]
  - NAUSEA [None]
  - PALLOR [None]
  - WEIGHT DECREASED [None]
